FAERS Safety Report 14987307 (Version 6)
Quarter: 2019Q1

REPORT INFORMATION
  Report Type: Spontaneous
  Country: US (occurrence: US)
  Receive Date: 20180608
  Receipt Date: 20190322
  Transmission Date: 20190417
  Serious: Yes (Hospitalization, Other)
  Sender: FDA-Public Use
  Company Number: US-ASTRAZENECA-2018SE64638

PATIENT
  Age: 75 Year
  Sex: Female
  Weight: 71.7 kg

DRUGS (12)
  1. TUDORZA PRESSAIR [Suspect]
     Active Substance: ACLIDINIUM BROMIDE
     Indication: CHRONIC OBSTRUCTIVE PULMONARY DISEASE
     Route: 055
     Dates: start: 2012
  2. TUDORZA PRESSAIR [Suspect]
     Active Substance: ACLIDINIUM BROMIDE
     Indication: EMPHYSEMA
     Route: 055
     Dates: start: 2012
  3. TUDORZA PRESSAIR [Suspect]
     Active Substance: ACLIDINIUM BROMIDE
     Indication: CHRONIC OBSTRUCTIVE PULMONARY DISEASE
     Route: 055
     Dates: start: 20190118
  4. TUDORZA PRESSAIR [Suspect]
     Active Substance: ACLIDINIUM BROMIDE
     Indication: EMPHYSEMA
     Route: 055
     Dates: start: 20190118
  5. ADVAIR HFA [Concomitant]
     Active Substance: FLUTICASONE PROPIONATE\SALMETEROL XINAFOATE
     Indication: CHRONIC OBSTRUCTIVE PULMONARY DISEASE
     Dosage: 250-50 ONE PUFF TWICE A DAY
     Route: 055
     Dates: start: 2012
  6. LEVOTHYROXINE. [Concomitant]
     Active Substance: LEVOTHYROXINE
     Indication: THYROID DISORDER
  7. TUDORZA PRESSAIR [Suspect]
     Active Substance: ACLIDINIUM BROMIDE
     Indication: BRONCHITIS
     Route: 055
     Dates: start: 2012
  8. TUDORZA PRESSAIR [Suspect]
     Active Substance: ACLIDINIUM BROMIDE
     Indication: BRONCHITIS
     Route: 055
     Dates: start: 20190118
  9. PLAVIX [Concomitant]
     Active Substance: CLOPIDOGREL BISULFATE
     Dates: start: 201807
  10. ELAQUIS [Concomitant]
     Indication: THROMBOSIS
     Dosage: TWO TIMES A DAY
     Dates: start: 201807
  11. LIPITOR [Concomitant]
     Active Substance: ATORVASTATIN CALCIUM
  12. LASIX [Concomitant]
     Active Substance: FUROSEMIDE
     Dates: start: 201807

REACTIONS (17)
  - Malaise [Unknown]
  - Device malfunction [Unknown]
  - Pneumonia bacterial [Unknown]
  - Staphylococcal sepsis [Unknown]
  - Grip strength decreased [Unknown]
  - Dry mouth [Not Recovered/Not Resolved]
  - Laryngitis [Not Recovered/Not Resolved]
  - Intentional product misuse [Unknown]
  - Pulmonary mass [Recovered/Resolved]
  - Cough [Not Recovered/Not Resolved]
  - Clostridium difficile infection [Unknown]
  - Device issue [Unknown]
  - Lung neoplasm [Unknown]
  - Neoplasm malignant [Unknown]
  - Device occlusion [Unknown]
  - Anxiety [Not Recovered/Not Resolved]
  - Anger [Not Recovered/Not Resolved]

NARRATIVE: CASE EVENT DATE: 2018
